FAERS Safety Report 14032076 (Version 3)
Quarter: 2017Q4

REPORT INFORMATION
  Report Type: Report from Study
  Country: CA (occurrence: CA)
  Receive Date: 20171002
  Receipt Date: 20171016
  Transmission Date: 20180321
  Serious: Yes (Hospitalization, Other)
  Sender: FDA-Public Use
  Company Number: CA-JNJFOC-20170829254

PATIENT
  Age: 21 Year
  Sex: Male
  Weight: 66.7 kg

DRUGS (3)
  1. STELARA [Suspect]
     Active Substance: USTEKINUMAB
     Indication: CROHN^S DISEASE
     Dosage: STRENGTH = 130 MG
     Route: 042
     Dates: start: 20170706
  2. METHOTREXATE. [Concomitant]
     Active Substance: METHOTREXATE
     Route: 048
  3. STELARA [Suspect]
     Active Substance: USTEKINUMAB
     Indication: CROHN^S DISEASE
     Route: 042
     Dates: start: 20170831, end: 20170928

REACTIONS (3)
  - Crohn^s disease [Not Recovered/Not Resolved]
  - Therapeutic response decreased [Unknown]
  - Infection [Unknown]

NARRATIVE: CASE EVENT DATE: 2017
